FAERS Safety Report 5566456-6 (Version None)
Quarter: 2007Q4

REPORT INFORMATION
  Report Type: 
  Country: None (occurrence: None)
  Receive Date: 20071219
  Receipt Date: 20071213
  Transmission Date: 20080405
  Serious: Yes (Other)
  Sender: FDA-Public Use
  Company Number: US-ASTRAZENECA-2007UW28420

PATIENT
  Age: 42 Year
  Sex: Female

DRUGS (8)
  1. SEROQUEL [Suspect]
     Route: 048
     Dates: start: 20071209, end: 20071209
  2. SEROQUEL [Suspect]
     Route: 048
     Dates: start: 20071210, end: 20071211
  3. SEROQUEL [Suspect]
     Route: 048
     Dates: start: 20071212
  4. THIAMINE [Concomitant]
     Route: 048
  5. MULTI-VITAMIN [Concomitant]
     Route: 048
  6. MAGNESIUM OXIDE [Concomitant]
     Route: 048
     Dates: end: 20071210
  7. FOLIC ACID [Concomitant]
     Route: 048
  8. CHOLASE [Concomitant]
     Route: 048

REACTIONS (2)
  - BREAST ENGORGEMENT [None]
  - BREAST PAIN [None]
